FAERS Safety Report 24553999 (Version 1)
Quarter: 2024Q4

REPORT INFORMATION
  Report Type: Spontaneous
  Country: US (occurrence: US)
  Receive Date: 20241028
  Receipt Date: 20241028
  Transmission Date: 20250115
  Serious: Yes (Hospitalization, Other)
  Sender: AMGEN
  Company Number: US-AMGEN-USASP2024210270

PATIENT
  Age: 25 Year
  Sex: Female

DRUGS (3)
  1. PREDNISONE [Suspect]
     Active Substance: PREDNISONE
     Indication: Type 1 diabetes mellitus
     Dosage: 15 MILLIGRAM, QD
     Route: 065
  2. INSULIN NOS [Concomitant]
     Active Substance: INSULIN NOS
  3. MESALAMINE [Concomitant]
     Active Substance: MESALAMINE

REACTIONS (8)
  - Hashimoto^s encephalopathy [Recovered/Resolved]
  - Hyperkalaemia [Unknown]
  - Hypothyroidism [Unknown]
  - Addison^s disease [Unknown]
  - Polyarthritis [Unknown]
  - Blood lactate dehydrogenase abnormal [Unknown]
  - Vitiligo [Unknown]
  - Off label use [Unknown]
